FAERS Safety Report 4630708-4 (Version None)
Quarter: 2005Q2

REPORT INFORMATION
  Report Type: 
  Country: None (occurrence: None)
  Receive Date: 20050408
  Receipt Date: 20050224
  Transmission Date: 20051028
  Serious: Yes (Other)
  Sender: FDA-Public Use
  Company Number: FR-ROCHE-396671

PATIENT
  Age: 39 Year
  Sex: Female
  Weight: 65 kg

DRUGS (3)
  1. TAMIFLU [Suspect]
     Route: 048
     Dates: start: 20050223, end: 20050228
  2. LEVOTHYROXINE SODIUM [Concomitant]
     Route: 048
     Dates: start: 20020210
  3. GESTODENE AND ETHINYL ESTRADIOL [Concomitant]
     Indication: CONTRACEPTION
     Route: 048
     Dates: start: 20010723

REACTIONS (4)
  - ANXIETY DISORDER [None]
  - HALLUCINATION [None]
  - HYPERSOMNIA [None]
  - SOMNOLENCE [None]
